FAERS Safety Report 5533366-X (Version None)
Quarter: 2007Q4

REPORT INFORMATION
  Report Type: 
  Country: None (occurrence: None)
  Receive Date: 20071204
  Receipt Date: 20071126
  Transmission Date: 20080405
  Serious: No
  Sender: FDA-Public Use
  Company Number: US-ELI_LILLY_AND_COMPANY-US200711006123

PATIENT
  Sex: Male

DRUGS (2)
  1. CYMBALTA [Suspect]
     Dosage: 1 D/F, UNK
     Dates: start: 20050401
  2. CYMBALTA [Suspect]
     Dosage: 1 D/F, UNK

REACTIONS (2)
  - HYPERAMMONAEMIA [None]
  - POISONING [None]
